FAERS Safety Report 7001147-6 (Version None)
Quarter: 2010Q3

REPORT INFORMATION
  Report Type: 
  Country: None (occurrence: None)
  Receive Date: 20100920
  Receipt Date: 20100913
  Transmission Date: 20110219
  Serious: Yes (Other)
  Sender: FDA-Public Use
  Company Number: PHHY2010US52584

PATIENT
  Sex: Female

DRUGS (6)
  1. VIVELLE-DOT [Suspect]
     Dosage: 0.025 MG
     Route: 062
  2. ESTRADIOL [Suspect]
     Dosage: 0.25 MG
     Route: 062
  3. ESTRADERM [Suspect]
     Route: 062
  4. ATENOLOL [Concomitant]
     Dosage: 50 MG
  5. GENERIC OF COZAAR [Concomitant]
  6. LEVOTHYROXINE [Concomitant]

REACTIONS (20)
  - ACCIDENT [None]
  - APPLICATION SITE IRRITATION [None]
  - APPLICATION SITE PRURITUS [None]
  - BURNING SENSATION [None]
  - DRUG INEFFECTIVE [None]
  - DRY SKIN [None]
  - FALL [None]
  - FEELING HOT [None]
  - HAEMORRHAGE [None]
  - HOT FLUSH [None]
  - HYPERHIDROSIS [None]
  - HYPERSENSITIVITY [None]
  - LIMB CRUSHING INJURY [None]
  - MALAISE [None]
  - NERVOUS SYSTEM DISORDER [None]
  - PAIN [None]
  - PRURITUS [None]
  - SCAB [None]
  - SKIN REACTION [None]
  - SLEEP DISORDER [None]
